FAERS Safety Report 6851438-4 (Version None)
Quarter: 2010Q3

REPORT INFORMATION
  Report Type: 
  Country: None (occurrence: None)
  Receive Date: 20100717
  Receipt Date: 20080319
  Transmission Date: 20110219
  Serious: No
  Sender: FDA-Public Use
  Company Number: US-PFIZER INC-2008005431

PATIENT
  Age: 56 Year
  Sex: Male

DRUGS (1)
  1. CHANTIX [Suspect]
     Route: 048
     Dates: start: 20071001

REACTIONS (1)
  - DYSPNOEA [None]
